FAERS Safety Report 11820138 (Version 1)
Quarter: 2015Q4

REPORT INFORMATION
  Report Type: Spontaneous
  Country: US (occurrence: None)
  Receive Date: 20151209
  Receipt Date: 20151209
  Transmission Date: 20160305
  Serious: Yes (Hospitalization)
  Sender: FDA-Public Use
  Company Number: None

PATIENT
  Age: 72 Year
  Sex: Female
  Weight: 72.5 kg

DRUGS (3)
  1. ZYVOX [Concomitant]
     Active Substance: LINEZOLID
  2. AVYCAZ [Suspect]
     Active Substance: AVIBACTAM SODIUM\CEFTAZIDIME
     Indication: ESCHERICHIA INFECTION
     Dosage: 2G/0.5G Q8H
     Route: 042
     Dates: start: 20151119, end: 20151125
  3. FLAGYL [Concomitant]
     Active Substance: METRONIDAZOLE\METRONIDAZOLE HYDROCHLORIDE

REACTIONS (3)
  - Hepatic enzyme increased [None]
  - Cholestasis [None]
  - Jaundice [None]

NARRATIVE: CASE EVENT DATE: 20151124
